FAERS Safety Report 19615467 (Version 1)
Quarter: 2021Q3

REPORT INFORMATION
  Report Type: Spontaneous
  Country: GB (occurrence: GB)
  Receive Date: 20210727
  Receipt Date: 20210727
  Transmission Date: 20211014
  Serious: Yes (Other)
  Sender: FDA-Public Use
  Company Number: GB-MYLANLABS-2021M1045640

PATIENT
  Age: 70 Year
  Sex: Male

DRUGS (5)
  1. APIXABAN [Suspect]
     Active Substance: APIXABAN
     Indication: ILL-DEFINED DISORDER
     Dosage: UNKNOWN
  2. UDDERLY SMOOTH MOISTURIZING LOTION [Concomitant]
     Active Substance: COSMETICS
     Dosage: 8 OZ
  3. LOPERAMIDE [Concomitant]
     Active Substance: LOPERAMIDE
     Indication: ILL-DEFINED DISORDER
     Dosage: UNK
  4. CABOZANTINIB [Concomitant]
     Active Substance: CABOZANTINIB
     Indication: ILL-DEFINED DISORDER
     Dosage: UNK
  5. METOCLOPRAMIDE. [Concomitant]
     Active Substance: METOCLOPRAMIDE
     Indication: ILL-DEFINED DISORDER
     Dosage: UNK

REACTIONS (2)
  - Tongue disorder [Unknown]
  - Haemoptysis [Unknown]
